FAERS Safety Report 6690691-7 (Version None)
Quarter: 2010Q2

REPORT INFORMATION
  Report Type: 
  Country: None (occurrence: None)
  Receive Date: 20100420
  Receipt Date: 20100420
  Transmission Date: 20101027
  Serious: Yes (Hospitalization)
  Sender: FDA-Public Use
  Company Number: None

PATIENT
  Age: 67 Year
  Sex: Male
  Weight: 212.3 kg

DRUGS (1)
  1. POTASSIUM CHLORIDE [Suspect]
     Indication: BLOOD POTASSIUM
     Dosage: 20 MG BID PO
     Route: 048
     Dates: start: 20090916, end: 20100413

REACTIONS (1)
  - HYPERKALAEMIA [None]
